FAERS Safety Report 8978214 (Version 1)
Quarter: 2012Q4

REPORT INFORMATION
  Report Type: Spontaneous
  Country: US (occurrence: None)
  Receive Date: 20121218
  Receipt Date: 20121218
  Transmission Date: 20130627
  Serious: Yes (Hospitalization)
  Sender: FDA-Public Use
  Company Number: None

PATIENT
  Age: 48 Year
  Sex: Female
  Weight: 50.8 kg

DRUGS (1)
  1. COPAXONE [Suspect]
     Indication: MULTIPLE SCLEROSIS
     Dosage: 20mg/1ml 1x/day sub-q
     Dates: start: 2000, end: 2012

REACTIONS (4)
  - Injection site haemorrhage [None]
  - Incorrect route of drug administration [None]
  - Injection site discolouration [None]
  - Injection site pain [None]
